FAERS Safety Report 5009735-3 (Version None)
Quarter: 2006Q2

REPORT INFORMATION
  Report Type: 
  Country: None (occurrence: None)
  Receive Date: 20060522
  Receipt Date: 20060511
  Transmission Date: 20061013
  Serious: Yes (Hospitalization, Other)
  Sender: FDA-Public Use
  Company Number: 2006063570

PATIENT
  Age: 16 Year
  Sex: Female
  Weight: 60 kg

DRUGS (3)
  1. GENOTROPIN [Suspect]
     Indication: TURNER'S SYNDROME
     Dosage: 3 MG (1 IN 1 D), SUBCUTANEOUS
     Route: 058
     Dates: start: 20040801
  2. OXANDRIN [Concomitant]
  3. ESTRADIOL [Concomitant]

REACTIONS (2)
  - BRAIN OEDEMA [None]
  - MENINGIOMA [None]
